FAERS Safety Report 6278543-8 (Version None)
Quarter: 2009Q3

REPORT INFORMATION
  Report Type: 
  Country: None (occurrence: None)
  Receive Date: 20090722
  Receipt Date: 20080728
  Transmission Date: 20100115
  Serious: No
  Sender: FDA-Public Use
  Company Number: US-BAUSCH-2008BL003288

PATIENT
  Age: 24 Year
  Sex: Female

DRUGS (2)
  1. OPCON-A [Suspect]
     Indication: OFF LABEL USE
     Route: 047
     Dates: start: 20080728, end: 20080728
  2. OPCON-A [Suspect]
     Indication: DRY EYE
     Route: 047
     Dates: start: 20080728, end: 20080728

REACTIONS (3)
  - INCORRECT DOSE ADMINISTERED [None]
  - MYDRIASIS [None]
  - PHOTOPHOBIA [None]
